FAERS Safety Report 9690278 (Version 1)
Quarter: 2013Q4

REPORT INFORMATION
  Report Type: Spontaneous
  Country: US (occurrence: None)
  Receive Date: 20131114
  Receipt Date: 20131114
  Transmission Date: 20140711
  Serious: No
  Sender: FDA-Public Use
  Company Number: None

PATIENT
  Age: 53 Year
  Sex: Male
  Weight: 76 kg

DRUGS (4)
  1. OXALIPLATIN (ELOXATIN) [Suspect]
  2. BEVACIZUMAB (RHUMAB VEGF) (704865) [Suspect]
  3. 5-FLUOROURACIL (5-FU) [Suspect]
  4. LEUCOVORIN CALCIUM [Suspect]

REACTIONS (1)
  - Neuropathy peripheral [None]
